FAERS Safety Report 6584696-4 (Version None)
Quarter: 2010Q1

REPORT INFORMATION
  Report Type: 
  Country: None (occurrence: None)
  Receive Date: 20100217
  Receipt Date: 20100205
  Transmission Date: 20100710
  Serious: Yes (Other)
  Sender: FDA-Public Use
  Company Number: PHHY2010BR06612

PATIENT
  Sex: Female

DRUGS (4)
  1. DIOVAN AMLO FIX [Suspect]
     Indication: HYPERTENSION
     Dosage: (320/5) MG, ONCE A DAY
     Route: 048
     Dates: start: 20091201
  2. ATENOLOL [Concomitant]
     Dosage: 25 MG
     Route: 048
  3. NATRILIX - SLOW RELEASE [Concomitant]
     Dosage: ONCE A DAY
  4. NEXIUM [Concomitant]
     Indication: ABDOMINAL DISCOMFORT
     Dosage: EVERY OTHER DAY
     Route: 048

REACTIONS (1)
  - HYPERTENSION [None]
